FAERS Safety Report 13253980 (Version 1)
Quarter: 2017Q1

REPORT INFORMATION
  Report Type: Report from Study
  Country: IT (occurrence: IT)
  Receive Date: 20170220
  Receipt Date: 20170220
  Transmission Date: 20170428
  Serious: Yes (Death, Other)
  Sender: FDA-Public Use
  Company Number: IT-MYLANLABS-2017M1009802

PATIENT

DRUGS (3)
  1. THIOTEPA. [Suspect]
     Active Substance: THIOTEPA
     Indication: CENTRAL NERVOUS SYSTEM LYMPHOMA
     Dosage: 30MG/M2 DAY ON DAY 4
     Route: 065
  2. METHOTREXATE. [Suspect]
     Active Substance: METHOTREXATE
     Indication: CENTRAL NERVOUS SYSTEM LYMPHOMA
     Dosage: 3.5G/M2 ON DAY 1
     Route: 050
  3. CYTARABINE. [Suspect]
     Active Substance: CYTARABINE
     Indication: CENTRAL NERVOUS SYSTEM LYMPHOMA
     Dosage: 1G/M2 AS 1HOUR INFUSION, TWICE A DAY ON DAYS 2 AND 3
     Route: 050

REACTIONS (4)
  - Acute abdomen [Fatal]
  - Peritonitis [Fatal]
  - Large intestine perforation [Unknown]
  - Septic shock [Fatal]
